FAERS Safety Report 17515157 (Version 1)
Quarter: 2020Q1

REPORT INFORMATION
  Report Type: Spontaneous
  Country: GB (occurrence: GB)
  Receive Date: 20200309
  Receipt Date: 20200309
  Transmission Date: 20200409
  Serious: Yes (Hospitalization)
  Sender: FDA-Public Use
  Company Number: GB-TEVA-2020-GB-1195386

PATIENT
  Age: 68 Year
  Sex: Female
  Weight: 60 kg

DRUGS (10)
  1. ALENDRONIC ACID [Suspect]
     Active Substance: ALENDRONIC ACID
     Indication: OSTEOPOROSIS
     Dosage: 70 MG
     Route: 048
     Dates: start: 20081229, end: 20200128
  2. PARACETAMOL [Concomitant]
     Active Substance: ACETAMINOPHEN
  3. DULOXETINE. [Concomitant]
     Active Substance: DULOXETINE
  4. MEBEVERINE [Concomitant]
     Active Substance: MEBEVERINE
  5. ATENOLOL. [Concomitant]
     Active Substance: ATENOLOL
  6. QUININE [Concomitant]
     Active Substance: QUININE
  7. AMLODIPINE [Concomitant]
     Active Substance: AMLODIPINE BESYLATE
  8. ORAMORPH [Concomitant]
     Active Substance: MORPHINE SULFATE
  9. LANSOPRAZOLE. [Concomitant]
     Active Substance: LANSOPRAZOLE
  10. ATORVASTATIN [Concomitant]
     Active Substance: ATORVASTATIN

REACTIONS (3)
  - Bone disorder [Unknown]
  - Femur fracture [Not Recovered/Not Resolved]
  - Pathological fracture [Unknown]

NARRATIVE: CASE EVENT DATE: 20200127
